FAERS Safety Report 14894426 (Version 1)
Quarter: 2018Q2

REPORT INFORMATION
  Report Type: Spontaneous
  Country: US (occurrence: US)
  Receive Date: 20180515
  Receipt Date: 20180515
  Transmission Date: 20180711
  Serious: No
  Sender: FDA-Public Use
  Company Number: US-BIOGEN-2018BI00571896

PATIENT

DRUGS (1)
  1. TYSABRI [Suspect]
     Active Substance: NATALIZUMAB
     Indication: MULTIPLE SCLEROSIS
     Route: 065
     Dates: start: 201801

REACTIONS (8)
  - Muscle spasms [Unknown]
  - Pain in extremity [Unknown]
  - Diplopia [Unknown]
  - General physical health deterioration [Unknown]
  - Loss of control of legs [Unknown]
  - Memory impairment [Unknown]
  - Fatigue [Unknown]
  - Urinary retention [Unknown]
